FAERS Safety Report 14945014 (Version 1)
Quarter: 2018Q2

REPORT INFORMATION
  Report Type: Spontaneous
  Country: FR (occurrence: FR)
  Receive Date: 20180529
  Receipt Date: 20180529
  Transmission Date: 20180711
  Serious: Yes (Hospitalization)
  Sender: FDA-Public Use
  Company Number: FR-TEVA-2018-FR-898888

PATIENT
  Age: 50 Year
  Sex: Female
  Weight: 55 kg

DRUGS (10)
  1. SULFARLEM S 25 MG, COMPRIM? ENROB? [Concomitant]
     Dosage: 4 DOSAGE FORMS DAILY;
     Route: 048
  2. FLUOXETINE (CHLORHYDRATE DE) [Concomitant]
     Active Substance: FLUOXETINE HYDROCHLORIDE
     Dosage: 1 DOSAGE FORMS DAILY;
     Route: 048
  3. BROMAZEPAM [Concomitant]
     Active Substance: BROMAZEPAM
     Dosage: 32 MILLIGRAM DAILY;
     Route: 048
  4. CYAMEMAZINE [Concomitant]
     Active Substance: CYAMEMAZINE
     Dosage: 7 MILLIGRAM DAILY;
     Route: 048
  5. TRAMADOL (CHLORHYDRATE DE) [Suspect]
     Active Substance: TRAMADOL HYDROCHLORIDE
     Indication: SUICIDE ATTEMPT
     Dosage: 4000 MILLIGRAM DAILY;
     Route: 048
     Dates: start: 20180103, end: 20180103
  6. BROMAZEPAM [Suspect]
     Active Substance: BROMAZEPAM
     Route: 048
  7. CYAMEMAZINE [Concomitant]
     Active Substance: CYAMEMAZINE
     Route: 048
  8. PROPRANOLOL [Suspect]
     Active Substance: PROPRANOLOL HYDROCHLORIDE
     Indication: SUICIDE ATTEMPT
     Route: 048
     Dates: start: 20180103, end: 20180103
  9. HYDROCORTISONE. [Concomitant]
     Active Substance: HYDROCORTISONE
     Dosage: 40 MILLIGRAM DAILY;
     Route: 048
  10. OMEPRAZOLE. [Concomitant]
     Active Substance: OMEPRAZOLE
     Dosage: 20 MILLIGRAM DAILY;
     Route: 048

REACTIONS (4)
  - Altered state of consciousness [Recovered/Resolved]
  - Peripheral coldness [Recovered/Resolved]
  - Hypotension [Recovered/Resolved]
  - Rhabdomyolysis [Recovered/Resolved]

NARRATIVE: CASE EVENT DATE: 20180103
